FAERS Safety Report 23950201 (Version 1)
Quarter: 2024Q2

REPORT INFORMATION
  Report Type: Spontaneous
  Country: CN (occurrence: CN)
  Receive Date: 20240607
  Receipt Date: 20240607
  Transmission Date: 20240717
  Serious: Yes (Death)
  Sender: FDA-Public Use
  Company Number: CN-Eisai-EC-2024-167255

PATIENT
  Age: 52 Year
  Sex: Male
  Weight: 59 kg

DRUGS (15)
  1. LENVATINIB [Suspect]
     Active Substance: LENVATINIB
     Indication: Hepatic cancer
     Route: 048
     Dates: start: 20190619, end: 20190626
  2. ENTECAVIR [Concomitant]
     Active Substance: ENTECAVIR
     Indication: Hepatic cancer
     Dosage: DOSE AND FREQUENCY UNKNOWN
  3. ENTECAVIR [Concomitant]
     Active Substance: ENTECAVIR
     Indication: Hepatitis B
  4. AMMONIUM GLYCYRRHIZATE [Concomitant]
     Active Substance: AMMONIUM GLYCYRRHIZATE
     Indication: Hepatic cancer
     Dosage: DOSE AND FREQUENCY UNKNOWN
  5. AMMONIUM GLYCYRRHIZATE [Concomitant]
     Active Substance: AMMONIUM GLYCYRRHIZATE
     Indication: Hepatitis B
  6. CYSTEINE [Concomitant]
     Active Substance: CYSTEINE
     Indication: Hepatic cancer
     Dosage: DOSE AND FREQUENCY UNKNOWN
  7. CYSTEINE [Concomitant]
     Active Substance: CYSTEINE
     Indication: Hepatitis B
  8. OXALIPLATIN [Concomitant]
     Active Substance: OXALIPLATIN
     Indication: Hepatic cancer
     Dosage: DOSE AND FREQUENCY UNKNOWN
  9. OXALIPLATIN [Concomitant]
     Active Substance: OXALIPLATIN
     Indication: Hepatitis B
  10. LEUCOVORIN CALCIUM [Concomitant]
     Active Substance: LEUCOVORIN CALCIUM
     Indication: Hepatic cancer
     Dosage: DOSE AND FREQUENCY UNKNOWN
  11. LEUCOVORIN CALCIUM [Concomitant]
     Active Substance: LEUCOVORIN CALCIUM
     Indication: Hepatitis B
  12. FLUOROURACIL [Concomitant]
     Active Substance: FLUOROURACIL
     Indication: Hepatic cancer
     Dosage: DOSE AND FREQUENCY UNKNOWN
  13. FLUOROURACIL [Concomitant]
     Active Substance: FLUOROURACIL
     Indication: Hepatitis B
  14. PHOSPHOLIPID [Concomitant]
     Active Substance: PHOSPHOLIPID
     Indication: Hepatic cancer
     Dosage: DOSE AND FREQUENCY UNKNOWN
  15. PHOSPHOLIPID [Concomitant]
     Active Substance: PHOSPHOLIPID
     Indication: Hepatitis B

REACTIONS (5)
  - Tumour rupture [Fatal]
  - Tumour haemorrhage [Fatal]
  - Tumour lysis syndrome [Fatal]
  - Hepatic haemorrhage [Fatal]
  - Coma hepatic [Fatal]

NARRATIVE: CASE EVENT DATE: 20190626
